FAERS Safety Report 18445792 (Version 1)
Quarter: 2020Q4

REPORT INFORMATION
  Report Type: Spontaneous
  Country: US (occurrence: US)
  Receive Date: 20201030
  Receipt Date: 20201030
  Transmission Date: 20210114
  Serious: No
  Sender: FDA-Public Use
  Company Number: US-BAYER-2020-230216

PATIENT
  Sex: Male

DRUGS (2)
  1. ANTI DIABETIC [Concomitant]
  2. MIRALAX [Suspect]
     Active Substance: POLYETHYLENE GLYCOL 3350
     Indication: GASTROINTESTINAL DISORDER
     Dosage: ABOVE THE 17 GRAMS
     Route: 048
     Dates: start: 202010

REACTIONS (1)
  - Wrong technique in product usage process [None]
